FAERS Safety Report 24069893 (Version 1)
Quarter: 2024Q3

REPORT INFORMATION
  Report Type: Report from Study
  Country: TR (occurrence: TR)
  Receive Date: 20240710
  Receipt Date: 20240710
  Transmission Date: 20241016
  Serious: No
  Sender: ROCHE
  Company Number: TR-ROCHE-2997891

PATIENT
  Age: 54 Year
  Sex: Female
  Weight: 75.0 kg

DRUGS (18)
  1. ALECTINIB [Suspect]
     Active Substance: ALECTINIB
     Indication: Non-small cell lung cancer metastatic
     Route: 048
     Dates: start: 20181119
  2. ALECTINIB [Suspect]
     Active Substance: ALECTINIB
     Route: 048
     Dates: start: 20210602
  3. FENIRAMIN [Concomitant]
     Route: 042
     Dates: start: 20220104, end: 20220104
  4. AVELOX [Concomitant]
     Active Substance: MOXIFLOXACIN HYDROCHLORIDE
     Indication: Infection
     Route: 048
     Dates: start: 20220104, end: 20220109
  5. LEVOTHYROXINE SODIUM [Concomitant]
     Active Substance: LEVOTHYROXINE SODIUM
     Indication: Hypothyroidism
     Route: 048
     Dates: start: 2002
  6. PAROL [Concomitant]
     Active Substance: ACETAMINOPHEN
     Route: 048
     Dates: start: 202103
  7. XANAX [Concomitant]
     Active Substance: ALPRAZOLAM
     Indication: Anxiety
     Route: 048
     Dates: start: 20220113
  8. NAPROSYN CR [Concomitant]
     Indication: Osteoarthritis
     Route: 048
     Dates: start: 20220114, end: 20220124
  9. BETAMETHASONE DIPROPIONATE\BETAMETHASONE SODIUM PHOSPHATE [Concomitant]
     Active Substance: BETAMETHASONE DIPROPIONATE\BETAMETHASONE SODIUM PHOSPHATE
     Route: 014
     Dates: start: 20220114, end: 20220114
  10. SODIUM HYALURONATE [Concomitant]
     Active Substance: HYALURONATE SODIUM
     Route: 014
     Dates: start: 20220114, end: 20220114
  11. LANSOPRAZOLE [Concomitant]
     Active Substance: LANSOPRAZOLE
     Route: 048
     Dates: start: 20220114, end: 20220202
  12. IBUPROFEN [Concomitant]
     Active Substance: IBUPROFEN
     Indication: Nasopharyngitis
     Route: 048
     Dates: start: 20220101, end: 20220103
  13. AMOKSISILIN [Concomitant]
     Indication: Upper respiratory tract infection
     Route: 048
     Dates: start: 20220119, end: 20220126
  14. QALYVIZ [Concomitant]
     Route: 048
     Dates: start: 20231018, end: 20231026
  15. DEXKETOPROFEN [Concomitant]
     Active Substance: DEXKETOPROFEN
     Route: 048
     Dates: start: 20231019, end: 20231026
  16. PANTO (TURKEY) [Concomitant]
     Route: 048
     Dates: start: 20231019, end: 20231102
  17. FERRO-SANOL DUODENAL [Concomitant]
     Active Substance: FERROUS GLYCINE SULFATE
     Indication: Iron deficiency
     Route: 048
     Dates: start: 20231109
  18. D-COLEFOR [Concomitant]
     Route: 048
     Dates: start: 20231109, end: 20231123

REACTIONS (2)
  - Leukocytosis [Recovered/Resolved]
  - Insomnia [Recovering/Resolving]

NARRATIVE: CASE EVENT DATE: 20220104
